FAERS Safety Report 23224845 (Version 1)
Quarter: 2023Q4

REPORT INFORMATION
  Report Type: Spontaneous
  Country: IT (occurrence: IT)
  Receive Date: 20231124
  Receipt Date: 20231124
  Transmission Date: 20240109
  Serious: Yes (Other)
  Sender: FDA-Public Use
  Company Number: None

PATIENT
  Age: 65 Year
  Sex: Female

DRUGS (5)
  1. VECTIBIX [Suspect]
     Active Substance: PANITUMUMAB
     Indication: Colon cancer metastatic
     Dosage: II CYCLE - START OF THERAPY 07-JUN-2023 - THERAPY EVERY 14 DAYS
     Route: 040
     Dates: start: 20230621
  2. FLUOROURACIL [Suspect]
     Active Substance: FLUOROURACIL
     Indication: Colon cancer metastatic
     Dosage: II CYCLE - START OF THERAPY 07-JUN-2023 - THERAPY EVERY 14 DAYS
     Route: 040
     Dates: start: 20230621, end: 20230621
  3. FLUOROURACIL [Suspect]
     Active Substance: FLUOROURACIL
     Dosage: II CYCLE - START OF THERAPY 07-JUN-2023 - THERAPY EVERY 14 DAYS
     Route: 040
     Dates: start: 20230621, end: 20230621
  4. OXALIPLATIN [Suspect]
     Active Substance: OXALIPLATIN
     Indication: Colon cancer metastatic
     Dosage: II CYCLE - START OF THERAPY 07-JUN-2023 - THERAPY EVERY 14 DAYS
     Route: 040
     Dates: start: 20230621, end: 20230621
  5. LEUCOVORIN [Concomitant]
     Active Substance: LEUCOVORIN\LEUCOVORIN CALCIUM
     Dosage: 600 MILLIGRAM

REACTIONS (3)
  - Leukopenia [Not Recovered/Not Resolved]
  - Neutropenia [Not Recovered/Not Resolved]
  - Nausea [Recovered/Resolved]

NARRATIVE: CASE EVENT DATE: 20230621
